FAERS Safety Report 5105306-9 (Version None)
Quarter: 2006Q3

REPORT INFORMATION
  Report Type: 
  Country: None (occurrence: None)
  Receive Date: 20060912
  Receipt Date: 20060830
  Transmission Date: 20061208
  Serious: Yes (Disabling)
  Sender: FDA-Public Use
  Company Number: 228560

PATIENT
  Age: 38 Year
  Sex: Male

DRUGS (1)
  1. RAPTIVA [Suspect]
     Indication: PSORIASIS
     Dosage: 0.1, 1/WEEK, SUBCUTANEOUS
     Route: 058
     Dates: start: 20051121

REACTIONS (8)
  - CONDITION AGGRAVATED [None]
  - DYSHIDROSIS [None]
  - EOSINOPHILIA [None]
  - IMPETIGO [None]
  - INFLAMMATION [None]
  - PRURITUS [None]
  - PSORIASIS [None]
  - SKIN EXFOLIATION [None]
